FAERS Safety Report 8129958-4 (Version None)
Quarter: 2012Q1

REPORT INFORMATION
  Report Type: 
  Country: None (occurrence: None)
  Receive Date: 20120210
  Receipt Date: 20120208
  Transmission Date: 20120608
  Serious: Yes (Other)
  Sender: FDA-Public Use
  Company Number: HR-ABBOTT-12P-216-0902470-00

PATIENT
  Age: 61 Year
  Sex: Female

DRUGS (4)
  1. NORVASC [Concomitant]
     Indication: HYPERTENSION
     Route: 048
     Dates: start: 20090101
  2. BISOPROLOL FUMARATE [Concomitant]
     Indication: SUPRAVENTRICULAR TACHYCARDIA
     Route: 048
     Dates: start: 20090101
  3. TRICOR [Suspect]
     Indication: HYPERTRIGLYCERIDAEMIA
     Route: 048
     Dates: start: 20110726, end: 20110820
  4. LOSARTIC PLUS [Concomitant]
     Indication: HYPERTENSION
     Dosage: 1 IN 1 DAY, 50MG LOSARTAN + 12.5MG HCTZ
     Dates: start: 20090101

REACTIONS (3)
  - OEDEMA PERIPHERAL [None]
  - MALAISE [None]
  - FACE OEDEMA [None]
